FAERS Safety Report 6301655-7 (Version None)
Quarter: 2009Q3

REPORT INFORMATION
  Report Type: 
  Country: None (occurrence: None)
  Receive Date: 20090807
  Receipt Date: 20090729
  Transmission Date: 20100115
  Serious: Yes (Other)
  Sender: FDA-Public Use
  Company Number: PHEH2009US08407

PATIENT
  Sex: Male
  Weight: 32.086 kg

DRUGS (5)
  1. RECLAST [Suspect]
     Dosage: 5 MG YEARLY
     Dates: start: 20090727
  2. NEXIUM [Concomitant]
  3. PLAVIX [Concomitant]
  4. PRAVACHOL [Concomitant]
  5. VITAMINS NOS [Concomitant]

REACTIONS (2)
  - HALLUCINATION [None]
  - PAIN [None]
